FAERS Safety Report 6405674-1 (Version None)
Quarter: 2009Q4

REPORT INFORMATION
  Report Type: 
  Country: None (occurrence: None)
  Receive Date: 20091019
  Receipt Date: 20091013
  Transmission Date: 20100525
  Serious: Yes (Other)
  Sender: FDA-Public Use
  Company Number: B0598409A

PATIENT
  Age: 58 Year
  Sex: Female

DRUGS (1)
  1. ESKAZOLE [Suspect]
     Route: 065
     Dates: start: 20090820

REACTIONS (2)
  - ACUTE HEPATIC FAILURE [None]
  - ALOPECIA [None]
